FAERS Safety Report 13823261 (Version 5)
Quarter: 2017Q4

REPORT INFORMATION
  Report Type: Spontaneous
  Country: FR (occurrence: FR)
  Receive Date: 20170802
  Receipt Date: 20171130
  Transmission Date: 20180320
  Serious: Yes (Other)
  Sender: FDA-Public Use
  Company Number: FR-MERCK KGAA-2024039

PATIENT
  Age: 64 Year
  Sex: Female

DRUGS (7)
  1. CORDARONE [Concomitant]
     Active Substance: AMIODARONE HYDROCHLORIDE
  2. KARDEGIC [Concomitant]
     Active Substance: ASPIRIN DL-LYSINE
  3. NOVOTHYROX [Suspect]
     Active Substance: LEVOTHYROXINE SODIUM
     Indication: HYPOTHYROIDISM
     Dates: start: 201704
  4. TENORMIN [Concomitant]
     Active Substance: ATENOLOL
  5. LEXOMIL [Concomitant]
     Active Substance: BROMAZEPAM
  6. NOVOTHYROX [Suspect]
     Active Substance: LEVOTHYROXINE SODIUM
  7. NOVOTHYROX [Suspect]
     Active Substance: LEVOTHYROXINE SODIUM
     Dates: start: 201707

REACTIONS (16)
  - Arthralgia [None]
  - Fatigue [None]
  - Alopecia [None]
  - Blood thyroid stimulating hormone decreased [None]
  - Blood thyroid stimulating hormone increased [None]
  - Diarrhoea [None]
  - Therapeutic response increased [Not Recovered/Not Resolved]
  - Arrhythmia [None]
  - Muscle spasms [None]
  - Somnolence [None]
  - Depression [None]
  - Hyperthyroidism [Not Recovered/Not Resolved]
  - Product formulation issue [Not Recovered/Not Resolved]
  - Insomnia [None]
  - Blood thyroid stimulating hormone [Not Recovered/Not Resolved]
  - Constipation [None]

NARRATIVE: CASE EVENT DATE: 2017
